FAERS Safety Report 9352999 (Version 2)
Quarter: 2013Q3

REPORT INFORMATION
  Report Type: Spontaneous
  Country: US (occurrence: US)
  Receive Date: 20130618
  Receipt Date: 20130705
  Transmission Date: 20140515
  Serious: No
  Sender: FDA-Public Use
  Company Number: US-009507513-1306USA006787

PATIENT
  Age: 61 Year
  Sex: Male

DRUGS (2)
  1. REMERON [Suspect]
     Indication: DEPRESSION
     Dosage: 30MG/ONCE A DAY AT NIGHT
     Route: 048
     Dates: start: 199806
  2. DIOVAN [Concomitant]

REACTIONS (7)
  - Food craving [Not Recovered/Not Resolved]
  - Initial insomnia [Not Recovered/Not Resolved]
  - Depression [Not Recovered/Not Resolved]
  - Drug ineffective [Unknown]
  - Physical product label issue [Unknown]
  - Suspected counterfeit product [Unknown]
  - Product outer packaging issue [Unknown]
